FAERS Safety Report 14646613 (Version 1)
Quarter: 2018Q1

REPORT INFORMATION
  Report Type: Spontaneous
  Country: DE (occurrence: DE)
  Receive Date: 20180316
  Receipt Date: 20180316
  Transmission Date: 20180509
  Serious: Yes (Other)
  Sender: FDA-Public Use
  Company Number: PHHY2018DE037210

PATIENT
  Age: 49 Year
  Sex: Female

DRUGS (1)
  1. SULFAMETHOXAZOLE, TRIMETHOPRIM [Suspect]
     Active Substance: SULFAMETHOXAZOLE\TRIMETHOPRIM
     Indication: URINARY TRACT INFECTION
     Dosage: 1 DF (TRIMETHOPRIM 160 MG-SULFAMETHOXAZOLE 800 MG), UNK
     Route: 065

REACTIONS (3)
  - Meningitis aseptic [Recovering/Resolving]
  - Headache [Recovered/Resolved]
  - Neck pain [Unknown]
